FAERS Safety Report 13245578 (Version 4)
Quarter: 2018Q2

REPORT INFORMATION
  Report Type: Report from Study
  Country: AT (occurrence: AT)
  Receive Date: 20170217
  Receipt Date: 20180604
  Transmission Date: 20180711
  Serious: Yes (Hospitalization, Disabling, Other)
  Sender: FDA-Public Use
  Company Number: AT-INCYTE CORPORATION-2013IN001989

PATIENT

DRUGS (7)
  1. JAKAVI [Suspect]
     Active Substance: RUXOLITINIB
     Dosage: 10 MG, QD
     Route: 048
     Dates: start: 20141017
  2. JAKAVI [Suspect]
     Active Substance: RUXOLITINIB
     Dosage: 10 MG, QD
     Route: 048
     Dates: start: 20130117, end: 20130326
  3. JAKAVI [Suspect]
     Active Substance: RUXOLITINIB
     Dosage: 10 MG, QD
     Route: 048
     Dates: start: 20130629, end: 20130729
  4. JAKAVI [Suspect]
     Active Substance: RUXOLITINIB
     Indication: MYELOFIBROSIS
     Dosage: 10 MG, QD
     Route: 048
     Dates: start: 20121015, end: 20130110
  5. JAKAVI [Suspect]
     Active Substance: RUXOLITINIB
     Dosage: 10 MG, QD
     Route: 048
     Dates: start: 20130604, end: 20130625
  6. JAKAVI [Suspect]
     Active Substance: RUXOLITINIB
     Dosage: 10 MG, QD
     Route: 048
     Dates: start: 20130331, end: 20130411
  7. JAKAVI [Suspect]
     Active Substance: RUXOLITINIB
     Dosage: 10 MG, QD
     Route: 048
     Dates: start: 20130415, end: 20130509

REACTIONS (41)
  - Diarrhoea [Recovered/Resolved]
  - Hypertensive crisis [Recovered/Resolved]
  - Blood creatinine increased [Recovered/Resolved]
  - Eye infection [Recovered/Resolved]
  - Mouth haemorrhage [Recovered/Resolved]
  - Basal cell carcinoma [Recovered/Resolved]
  - Gastroenteritis norovirus [Recovered/Resolved]
  - Fall [Recovered/Resolved]
  - Epistaxis [Recovered/Resolved]
  - Infection [Recovered/Resolved]
  - Mouth haemorrhage [Unknown]
  - Eye pain [Recovered/Resolved]
  - Petechiae [Recovered/Resolved]
  - Nausea [Recovered/Resolved]
  - Retinal haemorrhage [Recovered/Resolved]
  - Bronchitis [Recovered/Resolved]
  - Tongue blistering [Unknown]
  - Gastroenteritis [Recovered/Resolved]
  - Injection site haematoma [Unknown]
  - Tongue haemorrhage [Recovered/Resolved]
  - Bronchitis viral [Recovered/Resolved]
  - Thrombocytopenia [Unknown]
  - Petechiae [Recovered/Resolved]
  - Rib fracture [Recovered/Resolved]
  - Vomiting [Recovered/Resolved]
  - Head injury [Recovered/Resolved]
  - Second primary malignancy [Recovered/Resolved]
  - Blood glucose fluctuation [Unknown]
  - Epistaxis [Recovered/Resolved]
  - Haematoma [Unknown]
  - Mouth haemorrhage [Recovered/Resolved]
  - Concussion [Recovered/Resolved]
  - Dry gangrene [Recovered/Resolved]
  - Petechiae [Recovered/Resolved]
  - Acute coronary syndrome [Recovered/Resolved]
  - Traumatic haemorrhage [Recovered/Resolved]
  - Angina pectoris [Recovered/Resolved]
  - Hypoglycaemia [Unknown]
  - Mouth haemorrhage [Recovered/Resolved]
  - Dry gangrene [Recovered/Resolved]
  - Staphylococcal infection [Recovered/Resolved]

NARRATIVE: CASE EVENT DATE: 2013
